FAERS Safety Report 8283164-1 (Version None)
Quarter: 2012Q2

REPORT INFORMATION
  Report Type: 
  Country: None (occurrence: None)
  Receive Date: 20120413
  Receipt Date: 20120409
  Transmission Date: 20120825
  Serious: Yes (Hospitalization)
  Sender: FDA-Public Use
  Company Number: US-GLAXOSMITHKLINE-Z0014406A

PATIENT
  Age: 55 Year
  Sex: Female
  Weight: 64.7 kg

DRUGS (13)
  1. LEVOTHROID [Concomitant]
     Indication: THYROID HORMONE REPLACEMENT THERAPY
     Dosage: .025MG PER DAY
     Route: 048
     Dates: start: 20120227
  2. CATAPRES-TTS-1 [Concomitant]
     Indication: HYPERTENSION
     Dosage: .1MG PER DAY
     Route: 061
     Dates: start: 20120226
  3. HYDRALAZINE HCL [Concomitant]
     Indication: HYPERTENSION
     Dosage: 20MGML FOUR TIMES PER DAY
     Route: 042
     Dates: start: 20120226, end: 20120308
  4. TOPOTECAN [Suspect]
     Indication: NEOPLASM
     Dosage: 2.5MG CYCLIC
     Route: 048
     Dates: start: 20120216
  5. PEPCID [Concomitant]
     Indication: DYSPEPSIA
     Dosage: 20MG TWICE PER DAY
     Route: 048
     Dates: start: 20120226
  6. BENADRYL [Concomitant]
     Indication: PREMEDICATION
     Dosage: 50MGML SINGLE DOSE
     Route: 042
     Dates: start: 20120227, end: 20120227
  7. AMLODIPINE [Concomitant]
     Indication: HYPERTENSION
     Dosage: 10MG PER DAY
     Route: 048
     Dates: start: 20120226
  8. LABETALOL HCL [Concomitant]
     Indication: HYPERTENSION
     Dosage: 300MG TWICE PER DAY
     Route: 048
     Dates: start: 20120226
  9. VOTRIENT [Suspect]
     Indication: NEOPLASM
     Dosage: 800MG PER DAY
     Route: 048
     Dates: start: 20120221
  10. REMERON [Concomitant]
     Indication: DEPRESSION
     Dosage: 15MG AT NIGHT
     Route: 048
     Dates: start: 20120226
  11. MORPHINE [Concomitant]
     Indication: PAIN
     Dosage: 2MG TWELVE TIMES PER DAY
     Route: 042
     Dates: start: 20120227, end: 20120305
  12. CYMBALTA [Concomitant]
     Indication: DEPRESSION
     Dosage: 60MG PER DAY
     Route: 048
     Dates: start: 20120226
  13. SYNTHROID [Concomitant]
     Indication: THYROID HORMONE REPLACEMENT THERAPY
     Dosage: 112MCG PER DAY
     Route: 048
     Dates: start: 20120227

REACTIONS (1)
  - HAEMOLYTIC URAEMIC SYNDROME [None]
